FAERS Safety Report 13725578 (Version 1)
Quarter: 2017Q3

REPORT INFORMATION
  Report Type: Spontaneous
  Country: US (occurrence: US)
  Receive Date: 20170706
  Receipt Date: 20170706
  Transmission Date: 20171127
  Serious: Yes (Other)
  Sender: FDA-Public Use
  Company Number: None

PATIENT
  Sex: Female
  Weight: 74.43 kg

DRUGS (2)
  1. BUPRENORPHINE-NALOXONE [Suspect]
     Active Substance: BUPRENORPHINE HYDROCHLORIDE\NALOXONE HYDROCHLORIDE
     Indication: DRUG DEPENDENCE
     Route: 060
     Dates: start: 20170607, end: 20170706
  2. SUBOXONE [Concomitant]
     Active Substance: BUPRENORPHINE HYDROCHLORIDE\NALOXONE HYDROCHLORIDE

REACTIONS (11)
  - Pain [None]
  - Drug dependence [None]
  - Withdrawal syndrome [None]
  - Headache [None]
  - Substance use [None]
  - Influenza like illness [None]
  - Nausea [None]
  - Gastrointestinal disorder [None]
  - Therapy change [None]
  - Restless legs syndrome [None]
  - Malaise [None]
